FAERS Safety Report 7120871-8 (Version None)
Quarter: 2010Q4

REPORT INFORMATION
  Report Type: 
  Country: None (occurrence: None)
  Receive Date: 20101124
  Receipt Date: 20101120
  Transmission Date: 20110411
  Serious: Yes (Other)
  Sender: FDA-Public Use
  Company Number: GB-PFIZER INC-2010154582

PATIENT

DRUGS (1)
  1. SUNITINIB MALATE [Suspect]
     Dosage: UNK

REACTIONS (1)
  - OSTEONECROSIS OF JAW [None]
